FAERS Safety Report 12463289 (Version 1)
Quarter: 2016Q2

REPORT INFORMATION
  Report Type: Spontaneous
  Country: US (occurrence: None)
  Receive Date: 20160613
  Receipt Date: 20160613
  Transmission Date: 20160815
  Serious: Yes (Other)
  Sender: FDA-Public Use
  Company Number: None

PATIENT
  Age: 59 Year
  Sex: Male
  Weight: 92.99 kg

DRUGS (6)
  1. PENNSAID [Suspect]
     Active Substance: DICLOFENAC SODIUM
     Indication: EPICONDYLITIS
     Dosage: 3 LIQUID IN POUCH AS NEEDED APPLIED TO A SURFACE, USUALLY THE SKIN
     Route: 061
     Dates: start: 20160604, end: 20160606
  2. VITAMIN D [Concomitant]
     Active Substance: CHOLECALCIFEROL
  3. MULTIVITAMINS [Concomitant]
     Active Substance: VITAMINS
  4. EDARBI [Concomitant]
     Active Substance: AZILSARTAN KAMEDOXOMIL
  5. ASPIRIN. [Concomitant]
     Active Substance: ASPIRIN
  6. LEXAPRO [Concomitant]
     Active Substance: ESCITALOPRAM OXALATE

REACTIONS (8)
  - Application site erythema [None]
  - Application site vesicles [None]
  - Application site pruritus [None]
  - Application site scab [None]
  - Application site discharge [None]
  - Dry skin [None]
  - Application site exfoliation [None]
  - Application site pain [None]

NARRATIVE: CASE EVENT DATE: 20160610
